FAERS Safety Report 5897570-3 (Version None)
Quarter: 2008Q3

REPORT INFORMATION
  Report Type: 
  Country: None (occurrence: None)
  Receive Date: 20080916
  Receipt Date: 20070824
  Transmission Date: 20090109
  Serious: Yes (Death)
  Sender: FDA-Public Use
  Company Number: S07-USA-03605-01

PATIENT
  Age: 60 Year
  Sex: Female

DRUGS (4)
  1. CELEXA [Suspect]
     Dosage: SEE IMAGE
     Route: 048
     Dates: end: 20070313
  2. CELEXA [Suspect]
     Dosage: SEE IMAGE
     Route: 048
     Dates: end: 20070313
  3. CELEXA [Suspect]
     Dosage: SEE IMAGE
     Route: 048
     Dates: start: 20070314, end: 20070330
  4. CELEXA [Suspect]
     Dosage: SEE IMAGE
     Route: 048
     Dates: start: 20070314, end: 20070330

REACTIONS (1)
  - DEATH [None]
